FAERS Safety Report 10229779 (Version 2)
Quarter: 2014Q3

REPORT INFORMATION
  Report Type: Report from Study
  Country: US (occurrence: US)
  Receive Date: 20140611
  Receipt Date: 20140915
  Transmission Date: 20150326
  Serious: Yes (Death)
  Sender: FDA-Public Use
  Company Number: PHEH2014US011675

PATIENT
  Sex: Male

DRUGS (16)
  1. ONGLYZA [Concomitant]
     Active Substance: SAXAGLIPTIN HYDROCHLORIDE
  2. ZOMETA [Concomitant]
     Active Substance: ZOLEDRONIC ACID
  3. AFINITOR [Suspect]
     Active Substance: EVEROLIMUS
     Indication: RENAL CANCER
     Dosage: 10 MG, QD
     Route: 048
     Dates: start: 20130228, end: 20131029
  4. IRON [Concomitant]
     Active Substance: IRON
  5. NITRO-BID [Concomitant]
     Active Substance: NITROGLYCERIN
  6. HYDROCODONE [Concomitant]
     Active Substance: HYDROCODONE
  7. AMLODIPINE [Concomitant]
     Active Substance: AMLODIPINE BESYLATE
  8. ASPIRIN. [Concomitant]
     Active Substance: ASPIRIN
  9. LISINOPRIL. [Concomitant]
     Active Substance: LISINOPRIL
  10. ONDANSETRON [Concomitant]
     Active Substance: ONDANSETRON
  11. VITAMIN D [Concomitant]
     Active Substance: CHOLECALCIFEROL
  12. FENOFIBRATE. [Concomitant]
     Active Substance: FENOFIBRATE
  13. GLIMEPIRIDE. [Concomitant]
     Active Substance: GLIMEPIRIDE
  14. METOPROLOL [Concomitant]
     Active Substance: METOPROLOL
  15. PROCRIT//EPOETIN ALFA [Concomitant]
  16. VITAMIN B12 [Concomitant]
     Active Substance: CYANOCOBALAMIN

REACTIONS (1)
  - Disease progression [Fatal]
